FAERS Safety Report 7151009-9 (Version None)
Quarter: 2010Q4

REPORT INFORMATION
  Report Type: 
  Country: None (occurrence: None)
  Receive Date: 20101210
  Receipt Date: 20101129
  Transmission Date: 20110411
  Serious: Yes (Hospitalization, Congenital Anomaly)
  Sender: FDA-Public Use
  Company Number: A0898910A

PATIENT
  Sex: Male

DRUGS (2)
  1. PAXIL [Suspect]
  2. AZT [Concomitant]
     Indication: HIV INFECTION

REACTIONS (4)
  - ATRIAL SEPTAL DEFECT [None]
  - CARDIAC MURMUR [None]
  - COMPLEX PARTIAL SEIZURES [None]
  - DRUG EXPOSURE DURING PREGNANCY [None]
